FAERS Safety Report 6788001-X (Version None)
Quarter: 2010Q2

REPORT INFORMATION
  Report Type: 
  Country: None (occurrence: None)
  Receive Date: 20100623
  Receipt Date: 20071213
  Transmission Date: 20101027
  Serious: Yes (Other)
  Sender: FDA-Public Use
  Company Number: US-PFIZER INC-2007089962

PATIENT
  Sex: Male

DRUGS (12)
  1. GLYNASE [Suspect]
     Indication: TYPE 2 DIABETES MELLITUS
     Dates: end: 20071001
  2. GENERAL NUTRIENTS [Suspect]
     Indication: MEDICAL DIET
  3. XANAX [Concomitant]
     Indication: ANXIETY
  4. METFORMIN HYDROCHLORIDE/SITAGLIPTIN [Concomitant]
     Indication: TYPE 2 DIABETES MELLITUS
  5. ACTOS [Concomitant]
     Indication: TYPE 2 DIABETES MELLITUS
  6. METFORMIN HCL [Concomitant]
     Indication: TYPE 2 DIABETES MELLITUS
  7. GLUCOSAMINE [Concomitant]
     Indication: ARTHROPATHY
  8. TYLENOL (CAPLET) [Concomitant]
     Indication: ARTHROPATHY
  9. XALATAN [Concomitant]
     Indication: GLAUCOMA
  10. LIPITOR [Concomitant]
     Indication: BLOOD CHOLESTEROL INCREASED
  11. VALSARTAN [Concomitant]
     Indication: HYPERTENSION
  12. ACETYLSALICYLIC ACID [Concomitant]

REACTIONS (5)
  - ASTHENIA [None]
  - BLOOD GLUCOSE DECREASED [None]
  - BLOOD GLUCOSE INCREASED [None]
  - DIZZINESS [None]
  - WEIGHT DECREASED [None]
